FAERS Safety Report 24367531 (Version 1)
Quarter: 2024Q3

REPORT INFORMATION
  Report Type: Spontaneous
  Country: US (occurrence: US)
  Receive Date: 20240926
  Receipt Date: 20240926
  Transmission Date: 20241017
  Serious: Yes (Other)
  Sender: AMGEN
  Company Number: US-AMGEN-USASP2024189483

PATIENT
  Age: 56 Year
  Sex: Male

DRUGS (8)
  1. RITUXIMAB [Suspect]
     Active Substance: RITUXIMAB
     Indication: Autoimmune haemolytic anaemia
     Dosage: UNK (TOTAL SIX DOSES)
     Route: 065
  2. PREDNISONE [Suspect]
     Active Substance: PREDNISONE
     Indication: Autoimmune haemolytic anaemia
     Dosage: 1 MILLIGRAM/KILOGRAM, QD
     Route: 065
  3. PREDNISONE [Suspect]
     Active Substance: PREDNISONE
     Dosage: 0.04 MILLIGRAM/KILOGRAM, QD
     Route: 065
     Dates: start: 201904
  4. PREDNISONE [Suspect]
     Active Substance: PREDNISONE
     Dosage: 0.15 MILLIGRAM/KILOGRAM, QD
     Route: 065
  5. PREDNISONE [Suspect]
     Active Substance: PREDNISONE
     Dosage: 0.3 MILLIGRAM/KILOGRAM, QD
     Route: 065
     Dates: start: 202203
  6. PREDNISONE [Suspect]
     Active Substance: PREDNISONE
     Dosage: 2 MILLIGRAM/KILOGRAM, QD (120 MILLIGRAM/DAY)
     Route: 065
  7. PREDNISONE [Suspect]
     Active Substance: PREDNISONE
     Dosage: 1 MILLIGRAM/KILOGRAM, QD
     Route: 065
     Dates: start: 202303
  8. PREDNISONE [Suspect]
     Active Substance: PREDNISONE
     Dosage: 0.66 MILLIGRAM/KILOGRAM, QD
     Route: 065
     Dates: start: 202310, end: 202403

REACTIONS (3)
  - Autoimmune haemolytic anaemia [Recovered/Resolved]
  - Osteopenia [Unknown]
  - Off label use [Unknown]

NARRATIVE: CASE EVENT DATE: 20190401
